FAERS Safety Report 7397536-0 (Version None)
Quarter: 2011Q2

REPORT INFORMATION
  Report Type: 
  Country: None (occurrence: None)
  Receive Date: 20110401
  Receipt Date: 20110401
  Transmission Date: 20111010
  Serious: Yes (Other)
  Sender: FDA-Public Use
  Company Number: None

PATIENT
  Age: 32 Year
  Sex: Male
  Weight: 99.7913 kg

DRUGS (1)
  1. UNISOM [Suspect]
     Indication: INSOMNIA
     Dosage: 1 TABLET BEFORE BED
     Dates: start: 20110318, end: 20110322

REACTIONS (6)
  - INSOMNIA [None]
  - MOOD SWINGS [None]
  - NIGHTMARE [None]
  - ANGER [None]
  - FEELING ABNORMAL [None]
  - HOMICIDAL IDEATION [None]
